FAERS Safety Report 9548199 (Version 1)
Quarter: 2013Q3

REPORT INFORMATION
  Report Type: Spontaneous
  Country: US (occurrence: None)
  Receive Date: 20130712
  Receipt Date: 20130712
  Transmission Date: 20140515
  Serious: Yes (Other)
  Sender: FDA-Public Use
  Company Number: 1474029

PATIENT
  Age: 23 Year
  Sex: Female

DRUGS (6)
  1. LIDOCAINE HCL [Suspect]
     Dosage: 20 MG/ML, NOT REPORTED, UKNOWN, INTRACERVICAL
     Dates: start: 20120929, end: 20120929
  2. FENTANYL CITRATE [Suspect]
     Dates: start: 20120929, end: 20120929
  3. SODIUM BICARBONATE [Suspect]
     Indication: HAEMORRHAGE
     Dosage: 1 CC, NOT REPORTED, UKNOWN, INTRACERVICAL
     Dates: start: 20120929, end: 20120929
  4. MIDAZOLAM [Suspect]
     Dates: start: 20120929, end: 20120929
  5. VASOPRESSIN INJECTION [Suspect]
     Indication: HAEMORRHAGE
     Dosage: 2 U/ML NOT REPORTED, UKNOWN, INTRACERVICAL
     Dates: start: 20120929, end: 20120929
  6. VASOPRESSIN INJECTION [Suspect]
     Indication: ABORTION INDUCED
     Dosage: 2 U/ML NOT REPORTED, UKNOWN, INTRACERVICAL
     Dates: start: 20120929, end: 20120929

REACTIONS (2)
  - Anaesthetic complication [None]
  - Off label use [None]
